FAERS Safety Report 8180847-9 (Version None)
Quarter: 2012Q1

REPORT INFORMATION
  Report Type: 
  Country: None (occurrence: None)
  Receive Date: 20120302
  Receipt Date: 20120228
  Transmission Date: 20120608
  Serious: Yes (Death)
  Sender: FDA-Public Use
  Company Number: US-US-EMD SERONO, INC.-7114065

PATIENT
  Sex: Female
  Weight: 59 kg

DRUGS (3)
  1. REBIF [Suspect]
     Indication: MULTIPLE SCLEROSIS
     Dates: start: 20091026, end: 20111102
  2. PROPRANOLOL [Concomitant]
     Indication: MIGRAINE
  3. COUMADIN [Concomitant]
     Indication: DEEP VEIN THROMBOSIS

REACTIONS (5)
  - DYSPNOEA [None]
  - FATIGUE [None]
  - BLOOD PRESSURE INCREASED [None]
  - FALL [None]
  - MYOCARDIAL INFARCTION [None]
